FAERS Safety Report 10144646 (Version 1)
Quarter: 2014Q2

REPORT INFORMATION
  Report Type: Spontaneous
  Country: US (occurrence: US)
  Receive Date: 20140430
  Receipt Date: 20140430
  Transmission Date: 20141212
  Serious: No
  Sender: FDA-Public Use
  Company Number: US-SANOFI-AVENTIS-2013SA079225

PATIENT
  Age: 55 Year
  Sex: Female
  Weight: 77 kg

DRUGS (3)
  1. LOVENOX [Suspect]
     Indication: DEEP VEIN THROMBOSIS
     Route: 065
     Dates: start: 20130727
  2. LOVENOX [Suspect]
     Indication: DEEP VEIN THROMBOSIS
     Route: 065
     Dates: start: 20130727
  3. ANTINEOPLASTIC AGENTS [Concomitant]

REACTIONS (4)
  - Fatigue [Unknown]
  - Somnolence [Not Recovered/Not Resolved]
  - Memory impairment [Not Recovered/Not Resolved]
  - Upper respiratory tract infection [Unknown]
